FAERS Safety Report 6808601-8 (Version None)
Quarter: 2010Q2

REPORT INFORMATION
  Report Type: 
  Country: None (occurrence: None)
  Receive Date: 20100629
  Receipt Date: 20090720
  Transmission Date: 20101027
  Serious: No
  Sender: FDA-Public Use
  Company Number: US-PFIZER INC-2009245414

PATIENT
  Sex: Male
  Weight: 93.4 kg

DRUGS (6)
  1. VIAGRA [Suspect]
     Indication: ERECTILE DYSFUNCTION
     Dosage: DAILY DOSE: 50 MG
     Route: 048
     Dates: start: 20050101
  2. GLUCOSAMINE [Concomitant]
     Dosage: UNK
     Route: 048
  3. MULTI-VITAMINS [Concomitant]
     Dosage: UNK
     Route: 048
  4. CALCIUM CARBONATE [Concomitant]
     Dosage: UNK
     Route: 048
  5. ACETYLSALICYLIC ACID [Concomitant]
     Dosage: UNK
     Route: 048
  6. FISH OIL [Concomitant]
     Dosage: UNK
     Route: 048

REACTIONS (1)
  - DRUG INEFFECTIVE [None]
